FAERS Safety Report 5451023-5 (Version None)
Quarter: 2007Q3

REPORT INFORMATION
  Report Type: 
  Country: None (occurrence: None)
  Receive Date: 20070801
  Receipt Date: 20061214
  Transmission Date: 20080115
  Serious: Yes (Other)
  Sender: FDA-Public Use
  Company Number: PHEH2006US14810

PATIENT

DRUGS (1)
  1. RITALIN LA [Suspect]
     Dosage: 30 MG, ORAL
     Route: 048

REACTIONS (2)
  - HALLUCINATION, AUDITORY [None]
  - HALLUCINATION, TACTILE [None]
